FAERS Safety Report 7558910-2 (Version None)
Quarter: 2011Q2

REPORT INFORMATION
  Report Type: 
  Country: None (occurrence: None)
  Receive Date: 20110613
  Receipt Date: 20110527
  Transmission Date: 20111010
  Serious: Yes (Other)
  Sender: FDA-Public Use
  Company Number: THQ2011A02669

PATIENT
  Age: 65 Year
  Sex: Female

DRUGS (1)
  1. ACTOS [Suspect]
     Indication: DIABETES MELLITUS
     Dosage: 30 MG (1 D) PER ORAL
     Route: 048
     Dates: start: 20110401, end: 20110507

REACTIONS (5)
  - DYSPHORIA [None]
  - EYE IRRITATION [None]
  - FATIGUE [None]
  - ERYTHEMA [None]
  - FACE OEDEMA [None]
